FAERS Safety Report 25791492 (Version 1)
Quarter: 2025Q3

REPORT INFORMATION
  Report Type: Spontaneous
  Country: US (occurrence: US)
  Receive Date: 20250911
  Receipt Date: 20250911
  Transmission Date: 20251021
  Serious: Yes (Life-Threatening, Hospitalization, Other)
  Sender: SANDOZ
  Company Number: US-SANDOZ-SDZ2025US066097

PATIENT
  Age: 19 Year
  Sex: Male

DRUGS (3)
  1. DIPRIVAN [Suspect]
     Active Substance: PROPOFOL
     Indication: General anaesthesia
     Route: 065
  2. SUCCINYLCHOLINE CHLORIDE [Suspect]
     Active Substance: SUCCINYLCHOLINE CHLORIDE
     Indication: General anaesthesia
     Route: 065
  3. SUGAMMADEX [Concomitant]
     Active Substance: SUGAMMADEX
     Indication: Product used for unknown indication
     Route: 065

REACTIONS (4)
  - Respiratory paralysis [Unknown]
  - Apnoea [Unknown]
  - Condition aggravated [Unknown]
  - Neuromuscular block prolonged [Unknown]
